FAERS Safety Report 6418126-X (Version None)
Quarter: 2009Q4

REPORT INFORMATION
  Report Type: 
  Country: None (occurrence: None)
  Receive Date: 20091026
  Receipt Date: 20091013
  Transmission Date: 20100525
  Serious: Yes (Disabling)
  Sender: FDA-Public Use
  Company Number: ADR38172009

PATIENT
  Age: 72 Year
  Sex: Male

DRUGS (6)
  1. SIMVASTATIN [Suspect]
     Indication: ATRIAL FIBRILLATION
     Dosage: 40 MG
     Dates: start: 20080205, end: 20080307
  2. DILTIAZEM [Concomitant]
  3. LOSARTAN [Concomitant]
  4. WARFARIN SODIUM [Concomitant]
  5. ASPIRIN [Concomitant]
  6. LERCANIDIPINE [Concomitant]

REACTIONS (2)
  - EYE INFLAMMATION [None]
  - RASH GENERALISED [None]
